FAERS Safety Report 18184241 (Version 32)
Quarter: 2025Q1

REPORT INFORMATION
  Report Type: Report from Study
  Country: US (occurrence: US)
  Receive Date: 20200824
  Receipt Date: 20250212
  Transmission Date: 20250409
  Serious: Yes (Hospitalization, Other)
  Sender: TAKEDA
  Company Number: US-SHIRE-US202027052

PATIENT
  Age: 25 Year
  Sex: Female
  Weight: 58 kg

DRUGS (49)
  1. HUMAN IMMUNOGLOBULIN G [Suspect]
     Active Substance: HUMAN IMMUNOGLOBULIN G
     Indication: Immunodeficiency common variable
     Dosage: 20 GRAM, Q4WEEKS
     Dates: start: 20060922
  2. HUMAN IMMUNOGLOBULIN G [Suspect]
     Active Substance: HUMAN IMMUNOGLOBULIN G
     Indication: Immunodeficiency
     Dosage: 20 GRAM, Q4WEEKS
     Dates: start: 20060925
  3. HUMAN IMMUNOGLOBULIN G [Suspect]
     Active Substance: HUMAN IMMUNOGLOBULIN G
     Dosage: 20 GRAM, Q8WEEKS
     Dates: start: 20080131
  4. HUMAN IMMUNOGLOBULIN G [Suspect]
     Active Substance: HUMAN IMMUNOGLOBULIN G
     Dosage: 20 GRAM, Q4WEEKS
     Dates: start: 20181128
  5. HUMAN IMMUNOGLOBULIN G [Suspect]
     Active Substance: HUMAN IMMUNOGLOBULIN G
     Dosage: 20 GRAM, Q8WEEKS
     Dates: start: 20190225
  6. HUMAN IMMUNOGLOBULIN G [Suspect]
     Active Substance: HUMAN IMMUNOGLOBULIN G
     Dosage: 20 GRAM, Q5WEEKS
  7. HUMAN IMMUNOGLOBULIN G [Suspect]
     Active Substance: HUMAN IMMUNOGLOBULIN G
     Dosage: 20 GRAM, Q4WEEKS
  8. EPINEPHRINE [Concomitant]
     Active Substance: EPINEPHRINE
  9. ACETAMINOPHEN [Concomitant]
     Active Substance: ACETAMINOPHEN
  10. CLARITIN [Concomitant]
     Active Substance: LORATADINE
  11. IBUPROFEN [Concomitant]
     Active Substance: IBUPROFEN
  12. CALCIUM\CHOLECALCIFEROL [Concomitant]
     Active Substance: CALCIUM\CHOLECALCIFEROL
  13. TOPAMAX [Concomitant]
     Active Substance: TOPIRAMATE
  14. ALBUTEROL [Concomitant]
     Active Substance: ALBUTEROL
  15. HEPARIN [Concomitant]
     Active Substance: HEPARIN SODIUM
  16. SODIUM CHLORIDE [Concomitant]
     Active Substance: SODIUM CHLORIDE
  17. SINGULAIR [Concomitant]
     Active Substance: MONTELUKAST SODIUM
  18. RANITIDINE [Concomitant]
     Active Substance: RANITIDINE
  19. MUPIROCIN [Concomitant]
     Active Substance: MUPIROCIN
  20. PULMICORT TURBUHALER [Concomitant]
     Active Substance: BUDESONIDE
  21. POTASSIUM [Concomitant]
     Active Substance: POTASSIUM
  22. CORTISPORIN-TC [Concomitant]
     Active Substance: COLISTIN SULFATE\HYDROCORTISONE ACETATE\NEOMYCIN SULFATE\THONZONIUM BROMIDE
  23. GENTAMICIN [Concomitant]
     Active Substance: GENTAMICIN
  24. MIRALAX [Concomitant]
     Active Substance: POLYETHYLENE GLYCOL 3350
  25. PHENOBARBITAL [Concomitant]
     Active Substance: PHENOBARBITAL
  26. KEPPRA [Concomitant]
     Active Substance: LEVETIRACETAM
  27. ACIDOPHILUS [Concomitant]
     Active Substance: LACTOBACILLUS ACIDOPHILUS
  28. LIDOCAINE\PRILOCAINE [Concomitant]
     Active Substance: LIDOCAINE\PRILOCAINE
  29. CIPRO [Concomitant]
     Active Substance: CIPROFLOXACIN HYDROCHLORIDE
  30. OXYGEN [Concomitant]
     Active Substance: OXYGEN
  31. CALCIUM CARBONATE [Concomitant]
     Active Substance: CALCIUM CARBONATE
  32. DIPHENHYDRAMINE [Concomitant]
     Active Substance: DIPHENHYDRAMINE
  33. DIPHENHYDRAMINE HYDROCHLORIDE [Concomitant]
     Active Substance: DIPHENHYDRAMINE HYDROCHLORIDE
  34. METHYLPREDNISOLONE [Concomitant]
     Active Substance: METHYLPREDNISOLONE
  35. ERGOCALCIFEROL [Concomitant]
     Active Substance: ERGOCALCIFEROL
  36. DOXYCYCLINE [Concomitant]
     Active Substance: DOXYCYCLINE
  37. OMEPRAZOLE [Concomitant]
     Active Substance: OMEPRAZOLE
  38. SODIUM CHLORIDE [Concomitant]
     Active Substance: SODIUM CHLORIDE
  39. SYNTHROID [Concomitant]
     Active Substance: LEVOTHYROXINE SODIUM
  40. DOCUSATE [Concomitant]
     Active Substance: DOCUSATE
  41. DOXYCYCLINE HYCLATE [Concomitant]
     Active Substance: DOXYCYCLINE HYCLATE
  42. PRILOSEC [Concomitant]
     Active Substance: OMEPRAZOLE MAGNESIUM
  43. RANITIDINE HYDROCHLORIDE [Concomitant]
     Active Substance: RANITIDINE HYDROCHLORIDE
  44. CHILDRENS TYLENOL [Concomitant]
     Active Substance: ACETAMINOPHEN
  45. BACTROBAN [Concomitant]
     Active Substance: MUPIROCIN CALCIUM
  46. MOTRIN [Concomitant]
     Active Substance: IBUPROFEN
  47. VITAMIN D3 [Concomitant]
     Active Substance: CHOLECALCIFEROL
  48. ALBUTEROL SULFATE [Concomitant]
     Active Substance: ALBUTEROL SULFATE
  49. DOCU [Concomitant]
     Active Substance: DOCUSATE SODIUM

REACTIONS (35)
  - Mastoiditis [Unknown]
  - Intestinal obstruction [Unknown]
  - Volvulus [Unknown]
  - Road traffic accident [Unknown]
  - Vascular device infection [Recovered/Resolved]
  - Urinary tract infection [Unknown]
  - Generalised tonic-clonic seizure [Unknown]
  - Gastrointestinal disorder [Unknown]
  - Pneumonia [Unknown]
  - Seizure [Unknown]
  - Ear infection [Not Recovered/Not Resolved]
  - Catheter site haemorrhage [Unknown]
  - Respiratory tract infection [Unknown]
  - Weight increased [Unknown]
  - Respiratory tract infection viral [Unknown]
  - Depressed mood [Unknown]
  - Osteoporosis [Unknown]
  - Drug hypersensitivity [Unknown]
  - COVID-19 [Unknown]
  - Infection [Not Recovered/Not Resolved]
  - Device issue [Unknown]
  - Illness [Unknown]
  - Cystitis [Unknown]
  - Faeces discoloured [Unknown]
  - Abnormal faeces [Unknown]
  - Product dose omission issue [Unknown]
  - Viral infection [Recovering/Resolving]
  - Bronchitis [Recovering/Resolving]
  - Urinary incontinence [Unknown]
  - Anal incontinence [Unknown]
  - Wheelchair user [Unknown]
  - Upper respiratory tract infection [Unknown]
  - Cough [Unknown]
  - Diarrhoea [Unknown]
  - Pyrexia [Unknown]

NARRATIVE: CASE EVENT DATE: 20230322
